FAERS Safety Report 4685665-1 (Version None)
Quarter: 2005Q2

REPORT INFORMATION
  Report Type: 
  Country: None (occurrence: None)
  Receive Date: 20050608
  Receipt Date: 20050523
  Transmission Date: 20051028
  Serious: Yes (Death, Other)
  Sender: FDA-Public Use
  Company Number: TR-MERCK-0506TUR00001

PATIENT
  Age: 7 Year
  Sex: Male

DRUGS (6)
  1. CANCIDAS [Suspect]
     Indication: ASPERGILLOSIS
     Route: 065
  2. AMPHOTERICIN B AND CHOLESTEROL AND DISTEAROYLPHOSPHATIDYLGLYCEROL AND [Concomitant]
     Indication: ASPERGILLOSIS
     Route: 065
  3. VORICONAZOLE [Concomitant]
     Indication: ASPERGILLOSIS
     Route: 065
  4. VANCOMYCIN [Concomitant]
     Indication: BRAIN ABSCESS
     Route: 065
  5. CEFTRIAXONE SODIUM [Concomitant]
     Indication: BRAIN ABSCESS
     Route: 065
  6. METRONIDAZOLE [Concomitant]
     Indication: BRAIN ABSCESS
     Route: 065

REACTIONS (6)
  - ASPERGILLOSIS [None]
  - DEATH [None]
  - DRUG INEFFECTIVE [None]
  - HEMIPLEGIA [None]
  - NEUROLOGICAL EXAMINATION ABNORMAL [None]
  - RENAL ABSCESS [None]
